FAERS Safety Report 5221831-4 (Version None)
Quarter: 2007Q1

REPORT INFORMATION
  Report Type: 
  Country: None (occurrence: None)
  Receive Date: 20070129
  Receipt Date: 20070118
  Transmission Date: 20070707
  Serious: Yes (Hospitalization)
  Sender: FDA-Public Use
  Company Number: US-ELI_LILLY_AND_COMPANY-US200609003598

PATIENT
  Age: 45 Year
  Sex: Female
  Weight: 127 kg

DRUGS (1)
  1. ZYPREXA [Suspect]
     Dosage: 10 MG, 2/D
     Route: 048
     Dates: start: 19980101, end: 20010101

REACTIONS (3)
  - DIABETES MELLITUS [None]
  - PULMONARY THROMBOSIS [None]
  - THROMBOSIS [None]
